FAERS Safety Report 6659692-9 (Version None)
Quarter: 2010Q1

REPORT INFORMATION
  Report Type: 
  Country: None (occurrence: None)
  Receive Date: 20100330
  Receipt Date: 20100322
  Transmission Date: 20100710
  Serious: Yes (Death, Other)
  Sender: FDA-Public Use
  Company Number: US-AMGEN-QUU393568

PATIENT
  Sex: Female

DRUGS (3)
  1. NPLATE [Suspect]
     Indication: IDIOPATHIC THROMBOCYTOPENIC PURPURA
     Dates: start: 20081017, end: 20081230
  2. WINRHO [Suspect]
     Dates: start: 20090109
  3. CORTICOSTEROIDS [Concomitant]
     Dates: start: 20080521

REACTIONS (2)
  - HAEMOLYSIS [None]
  - SEPTIC SHOCK [None]
